FAERS Safety Report 9193374 (Version 1)
Quarter: 2013Q1

REPORT INFORMATION
  Report Type: Spontaneous
  Country: US (occurrence: None)
  Receive Date: 20120703
  Receipt Date: 20120703
  Transmission Date: 20140127
  Serious: No
  Sender: FDA-Public Use
  Company Number: PHEH2012US005689

PATIENT
  Age: 41 Year
  Sex: Female
  Weight: 84.4 kg

DRUGS (4)
  1. GILENYA (FTY) CAPSULE, 0.5MG [Suspect]
     Indication: MULTIPLE SCLEROSIS
     Route: 048
     Dates: start: 20120312
  2. NASONEX (MOMETASONE FUROATE) [Concomitant]
  3. APRI (DESOGESTREL, ETHINYLESTRADIOL) [Concomitant]
  4. RELPAX (ELETRIPTAN HYDROBROMIDE) [Concomitant]

REACTIONS (1)
  - Fatigue [None]
